FAERS Safety Report 23173718 (Version 3)
Quarter: 2024Q1

REPORT INFORMATION
  Report Type: Spontaneous
  Country: CN (occurrence: CN)
  Receive Date: 20231111
  Receipt Date: 20240202
  Transmission Date: 20240409
  Serious: Yes (Life-Threatening)
  Sender: FDA-Public Use
  Company Number: CN-002147023-NVSC2023CN239993

PATIENT
  Age: 50 Year
  Sex: Female

DRUGS (4)
  1. MYFORTIC [Suspect]
     Active Substance: MYCOPHENOLATE SODIUM
     Indication: Renal transplant
     Dosage: 180 MG, BID
     Route: 048
     Dates: start: 20231031, end: 20231031
  2. MYFORTIC [Suspect]
     Active Substance: MYCOPHENOLATE SODIUM
     Dosage: 720 MG, ONCE/SINGLE
     Route: 048
     Dates: start: 20231031, end: 20231031
  3. LAPINE T-LYMPHOCYTE IMMUNE GLOBULIN [Concomitant]
     Active Substance: LAPINE T-LYMPHOCYTE IMMUNE GLOBULIN
     Indication: Product used for unknown indication
     Dosage: 50 MG
     Route: 065
     Dates: start: 20231030
  4. INSULIN HUMAN [Concomitant]
     Active Substance: INSULIN HUMAN
     Indication: Fluid replacement
     Dosage: 1 DOSAGE FORM, QD
     Route: 030
     Dates: start: 20231031, end: 20231031

REACTIONS (5)
  - Anaphylactic shock [Recovered/Resolved]
  - Urticaria [Recovered/Resolved]
  - Pruritus [Recovered/Resolved]
  - Blood pressure decreased [Recovered/Resolved]
  - Oxygen saturation decreased [Recovered/Resolved]

NARRATIVE: CASE EVENT DATE: 20231031
